FAERS Safety Report 17426212 (Version 1)
Quarter: 2020Q1

REPORT INFORMATION
  Report Type: Spontaneous
  Country: US (occurrence: US)
  Receive Date: 20200218
  Receipt Date: 20200218
  Transmission Date: 20200409
  Serious: Yes (Death, Other)
  Sender: FDA-Public Use
  Company Number: US-ROCHE-2547634

PATIENT
  Age: 73 Year
  Sex: Male
  Weight: 86.1 kg

DRUGS (1)
  1. ALTEPLASE. [Suspect]
     Active Substance: ALTEPLASE
     Indication: ISCHAEMIC STROKE
     Route: 042
     Dates: start: 20200117, end: 20200117

REACTIONS (5)
  - Dyspnoea [Unknown]
  - General physical health deterioration [Unknown]
  - Death [Fatal]
  - Hemiparesis [Unknown]
  - Mental status changes [Unknown]

NARRATIVE: CASE EVENT DATE: 20200117
